FAERS Safety Report 19020594 (Version 1)
Quarter: 2021Q1

REPORT INFORMATION
  Report Type: Spontaneous
  Country: CN (occurrence: CN)
  Receive Date: 20210317
  Receipt Date: 20210317
  Transmission Date: 20210420
  Serious: Yes (Hospitalization, Other)
  Sender: FDA-Public Use
  Company Number: CN-PFIZER INC-2021247082

PATIENT
  Age: 52 Year
  Sex: Male
  Weight: 49.75 kg

DRUGS (7)
  1. JIE BAI SHU [Suspect]
     Active Substance: NEDAPLATIN
     Indication: OESOPHAGEAL CARCINOMA
     Dosage: 110 MG, 1X/DAY
     Route: 041
     Dates: start: 20210107, end: 20210107
  2. JIE BAI SHU [Suspect]
     Active Substance: NEDAPLATIN
     Indication: CHEMOTHERAPY
  3. SODIUM CHLORIDE. [Concomitant]
     Active Substance: SODIUM CHLORIDE
     Indication: VEHICLE SOLUTION USE
     Dosage: 500 ML, 1X/DAY
     Route: 041
     Dates: start: 20210107, end: 20210107
  4. GLUCOSE [Concomitant]
     Active Substance: DEXTROSE
     Indication: VEHICLE SOLUTION USE
     Dosage: 100 ML, 1X/DAY
     Route: 041
     Dates: start: 20210107, end: 20210107
  5. ANZATAX [PACLITAXEL] [Suspect]
     Active Substance: PACLITAXEL
     Indication: OESOPHAGEAL CARCINOMA
     Dosage: 30 MG, 1X/DAY
     Route: 041
     Dates: start: 20210107, end: 20210107
  6. GLUCOSE [Concomitant]
     Active Substance: DEXTROSE
     Dosage: 500 ML, 1X/DAY
     Route: 041
     Dates: start: 20210107, end: 20210107
  7. ANZATAX [PACLITAXEL] [Suspect]
     Active Substance: PACLITAXEL
     Indication: CHEMOTHERAPY
     Dosage: 180 MG, 1X/DAY
     Route: 041
     Dates: start: 20210107, end: 20210107

REACTIONS (3)
  - Transaminases increased [Recovering/Resolving]
  - Hepatitis B [Unknown]
  - Off label use [Unknown]

NARRATIVE: CASE EVENT DATE: 20210107
